FAERS Safety Report 17434816 (Version 12)
Quarter: 2021Q2

REPORT INFORMATION
  Report Type: Report from Study
  Country: CO (occurrence: CO)
  Receive Date: 20200219
  Receipt Date: 20210603
  Transmission Date: 20210716
  Serious: Yes (Hospitalization)
  Sender: FDA-Public Use
  Company Number: NVSC2019CO012254

PATIENT
  Age: 76 Year
  Sex: Female
  Weight: 65 kg

DRUGS (5)
  1. VITAMIN B12 [Concomitant]
     Active Substance: CYANOCOBALAMIN
     Indication: PRODUCT USED FOR UNKNOWN INDICATION
     Dosage: 1000 UG, QD
     Route: 048
  2. REVOLADE [Suspect]
     Active Substance: ELTROMBOPAG OLAMINE
     Dosage: 25 MG, Q12H (ONE YEAR)
     Route: 048
  3. REVOLADE [Suspect]
     Active Substance: ELTROMBOPAG OLAMINE
     Dosage: 25 MG, QD (SHE HAS TO TAKE 2 OF 25 MG DAILY FOR A TOTAL OF 50 MG DAILY)
     Route: 048
  4. REVOLADE [Suspect]
     Active Substance: ELTROMBOPAG OLAMINE
     Indication: IMMUNE THROMBOCYTOPENIA
     Dosage: 50 MG, QD (2 YEARS AND A HALF AGO)
     Route: 048
     Dates: start: 20190904
  5. VITAMIN B NOS [Concomitant]
     Active Substance: VITAMIN B
     Indication: PRODUCT USED FOR UNKNOWN INDICATION
     Dosage: UNK
     Route: 065

REACTIONS (26)
  - Haemoptysis [Unknown]
  - Movement disorder [Unknown]
  - Insomnia [Unknown]
  - Deformity [Unknown]
  - Synovial cyst [Recovered/Resolved]
  - Varices oesophageal [Recovered/Resolved]
  - Product availability issue [Unknown]
  - Hypersensitivity [Unknown]
  - Limb discomfort [Unknown]
  - Throat lesion [Unknown]
  - Pain in extremity [Not Recovered/Not Resolved]
  - Inflammation [Unknown]
  - Neck pain [Unknown]
  - Product supply issue [Unknown]
  - Incorrect dose administered [Unknown]
  - Epistaxis [Not Recovered/Not Resolved]
  - Influenza [Recovered/Resolved]
  - Cough [Recovering/Resolving]
  - Platelet count decreased [Recovered/Resolved]
  - Ill-defined disorder [Unknown]
  - Illness [Unknown]
  - Gait disturbance [Unknown]
  - Depressed mood [Unknown]
  - Neck mass [Unknown]
  - Malaise [Unknown]
  - Head injury [Unknown]

NARRATIVE: CASE EVENT DATE: 20191028
